FAERS Safety Report 15716870 (Version 1)
Quarter: 2018Q4

REPORT INFORMATION
  Report Type: Spontaneous
  Country: GB (occurrence: GB)
  Receive Date: 20181213
  Receipt Date: 20181213
  Transmission Date: 20190205
  Serious: Yes (Disabling, Other)
  Sender: FDA-Public Use
  Company Number: GB-BRISTOL-MYERS SQUIBB COMPANY-BMS-2018-116404

PATIENT
  Age: 49 Year
  Sex: Female
  Weight: 125 kg

DRUGS (1)
  1. APIXABAN [Suspect]
     Active Substance: APIXABAN
     Indication: PULMONARY EMBOLISM
     Dosage: 10 MG, PER DAY
     Route: 048
     Dates: start: 20180809, end: 20181115

REACTIONS (1)
  - Arthralgia [Recovered/Resolved]
